FAERS Safety Report 16241881 (Version 12)
Quarter: 2020Q2

REPORT INFORMATION
  Report Type: Report from Study
  Country: GB (occurrence: GB)
  Receive Date: 20190426
  Receipt Date: 20200513
  Transmission Date: 20200713
  Serious: Yes (Death, Congenital Anomaly, Other)
  Sender: FDA-Public Use
  Company Number: GB-AUROBINDO-AUR-APL-2019-022785

PATIENT
  Age: 18 Week
  Sex: Female
  Weight: 3.43 kg

DRUGS (7)
  1. PREZCOBIX [Suspect]
     Active Substance: COBICISTAT\DARUNAVIR ETHANOLATE
     Dosage: , GESTATION PERIOD AT TIME OF EXPOSURE FIRST TRIMESTER1 TAB/CAP
     Route: 064
  2. ABACAVIR+LAMIVUDINE TABLETS [Suspect]
     Active Substance: ABACAVIR\LAMIVUDINE
     Indication: HIV INFECTION
     Dosage: 1 DOSAGE FORM, ONCE A DAY, GESTATION PERIOD AT TIME OF EXPOSURE FIRST TRIMESTER
     Route: 064
  3. ABACAVIR+LAMIVUDINE TABLETS [Suspect]
     Active Substance: ABACAVIR\LAMIVUDINE
     Dosage: 1 TAB/CAP
     Route: 064
  4. DARUNAVIR [Suspect]
     Active Substance: DARUNAVIR
     Indication: HIV INFECTION
     Dosage: UNK
     Route: 064
  5. RALTEGRAVIR. [Suspect]
     Active Substance: RALTEGRAVIR
     Indication: PRODUCT USED FOR UNKNOWN INDICATION
     Dosage: UNK, 1200, GESTATION PERIOD AT TIME OF EXPOSURE FIRST TRIMESTER
     Route: 064
  6. DARUNAVIR MYLAN [Suspect]
     Active Substance: DARUNAVIR
     Indication: HIV INFECTION
     Dosage: UNK, GESTATION PERIOD AT TIME OF EXPOSURE: 1 TRIMESTER
     Route: 064
  7. PREZCOBIX [Suspect]
     Active Substance: COBICISTAT\DARUNAVIR ETHANOLATE
     Indication: HIV INFECTION
     Dosage: 1 DOSAGE FORM, ONCE A DAY, (1 TABLET/CAPSULE )
     Route: 064

REACTIONS (4)
  - Brain injury [Fatal]
  - Gastroschisis [Fatal]
  - Foetal exposure during pregnancy [Fatal]
  - Foetal growth restriction [Fatal]

NARRATIVE: CASE EVENT DATE: 20190107
